FAERS Safety Report 12013558 (Version 6)
Quarter: 2016Q3

REPORT INFORMATION
  Report Type: Spontaneous
  Country: US (occurrence: US)
  Receive Date: 20160205
  Receipt Date: 20160802
  Transmission Date: 20161109
  Serious: Yes (Hospitalization, Disabling, Other)
  Sender: FDA-Public Use
  Company Number: US-009507513-1602USA002127

PATIENT
  Sex: Female
  Weight: 61.22 kg

DRUGS (9)
  1. VITAMINS (UNSPECIFIED) [Concomitant]
     Active Substance: VITAMINS
     Indication: PRODUCT USED FOR UNKNOWN INDICATION
     Dosage: 10 MG, UNKNOWN
     Route: 065
     Dates: start: 1970, end: 201405
  2. FOSAMAX PLUS D [Suspect]
     Active Substance: ALENDRONATE SODIUM\CHOLECALCIFEROL
     Indication: OSTEOPOROSIS
     Dosage: 70 MG, UNKNOWN
     Route: 048
     Dates: start: 20050819, end: 20070411
  3. ACTONEL [Suspect]
     Active Substance: RISEDRONATE SODIUM
     Dosage: 30 MG, UNK
     Route: 065
     Dates: start: 20070412, end: 20100113
  4. NEXIUM [Concomitant]
     Active Substance: ESOMEPRAZOLE MAGNESIUM
     Indication: PRODUCT USED FOR UNKNOWN INDICATION
     Dosage: UNK, UNKNOWN
     Route: 065
     Dates: start: 2003, end: 200912
  5. ACTONEL [Suspect]
     Active Substance: RISEDRONATE SODIUM
     Indication: OSTEOPOROSIS
     Dosage: 30 MG, UNKNOWN
     Route: 048
     Dates: start: 20011231, end: 20050210
  6. ALENDRONATE SODIUM. [Suspect]
     Active Substance: ALENDRONATE SODIUM
     Indication: OSTEOPOROSIS
     Dosage: 70 MG, UNK
     Route: 048
     Dates: start: 20100114, end: 20140106
  7. FOSAMAX [Suspect]
     Active Substance: ALENDRONATE SODIUM
     Indication: OSTEOPOROSIS
     Dosage: 70 MG, UNKNOWN
     Route: 048
     Dates: start: 20050211, end: 20070412
  8. PREMARIN [Concomitant]
     Active Substance: ESTROGENS, CONJUGATED
     Indication: HORMONE THERAPY
     Dosage: UNK, UNKNOWN
     Route: 065
     Dates: start: 1977, end: 2012
  9. CYANOCOBALAMIN. [Concomitant]
     Active Substance: CYANOCOBALAMIN
     Indication: PRODUCT USED FOR UNKNOWN INDICATION
     Dosage: 1000 MICRO-G/ML, UNKNOWN
     Route: 065
     Dates: start: 1980

REACTIONS (45)
  - Leukocytosis [Unknown]
  - Anaemia [Unknown]
  - Foot fracture [Recovered/Resolved]
  - Foot fracture [Recovered/Resolved with Sequelae]
  - Pathological fracture [Unknown]
  - Basal cell carcinoma [Unknown]
  - Basal cell carcinoma [Unknown]
  - Radicular pain [Recovering/Resolving]
  - Rhinitis perennial [Unknown]
  - Femur fracture [Recovered/Resolved]
  - Muscle incision [Recovered/Resolved]
  - Seasonal allergy [Not Recovered/Not Resolved]
  - Joint range of motion decreased [Unknown]
  - Epistaxis [Unknown]
  - Pain in extremity [Unknown]
  - Nausea [Unknown]
  - Systemic inflammatory response syndrome [Unknown]
  - Osteoporosis [Not Recovered/Not Resolved]
  - Basal cell carcinoma [Unknown]
  - Vitamin D deficiency [Unknown]
  - Osteoarthritis [Unknown]
  - Osteoarthritis [Recovered/Resolved with Sequelae]
  - Upper respiratory tract infection [Unknown]
  - Low turnover osteopathy [Not Recovered/Not Resolved]
  - Essential hypertension [Unknown]
  - Spinal osteoarthritis [Unknown]
  - Pneumonia [Unknown]
  - Nasal dryness [Unknown]
  - Proteinuria [Unknown]
  - Urinary tract infection [Unknown]
  - Folate deficiency [Unknown]
  - Fibrocystic breast disease [Unknown]
  - Sinus tachycardia [Unknown]
  - Oesophageal stenosis [Unknown]
  - Constipation [Not Recovered/Not Resolved]
  - Abscess soft tissue [Recovered/Resolved]
  - Hyponatraemia [Unknown]
  - Impaired healing [Unknown]
  - Anaemia postoperative [Not Recovered/Not Resolved]
  - Femur fracture [Recovered/Resolved]
  - Irritable bowel syndrome [Unknown]
  - Hiatus hernia [Unknown]
  - Fear of falling [Unknown]
  - Hyperglycaemia [Unknown]
  - Arthritis [Unknown]

NARRATIVE: CASE EVENT DATE: 200912
